FAERS Safety Report 6065296-1 (Version None)
Quarter: 2009Q1

REPORT INFORMATION
  Report Type: 
  Country: None (occurrence: None)
  Receive Date: 20090204
  Receipt Date: 20090130
  Transmission Date: 20090719
  Serious: Yes (Death, Hospitalization)
  Sender: FDA-Public Use
  Company Number: US-SANOFI-SYNTHELABO-A03200900432

PATIENT
  Age: 48 Year
  Sex: Female

DRUGS (4)
  1. PLAVIX [Suspect]
     Indication: CORONARY ARTERIAL STENT INSERTION
     Route: 048
     Dates: start: 20081201, end: 20081201
  2. PLAVIX [Suspect]
     Route: 048
     Dates: start: 20081201, end: 20081201
  3. INTEGRILIN [Concomitant]
     Indication: CORONARY ARTERIAL STENT INSERTION
     Dosage: UNK
     Route: 041
     Dates: start: 20081201, end: 20081201
  4. HEPARIN [Concomitant]
     Indication: CORONARY ARTERIAL STENT INSERTION
     Dosage: UNK
     Route: 041
     Dates: start: 20081201, end: 20081201

REACTIONS (10)
  - ANGINA PECTORIS [None]
  - BLOOD BILIRUBIN INCREASED [None]
  - DEEP VEIN THROMBOSIS [None]
  - HAEMOLYSIS [None]
  - MYOCARDIAL INFARCTION [None]
  - PULMONARY EMBOLISM [None]
  - RENAL FAILURE ACUTE [None]
  - THROMBOCYTOPENIA [None]
  - THROMBOSIS IN DEVICE [None]
  - THROMBOTIC THROMBOCYTOPENIC PURPURA [None]
